FAERS Safety Report 9376325 (Version 1)
Quarter: 2013Q3

REPORT INFORMATION
  Report Type: Spontaneous
  Country: US (occurrence: US)
  Receive Date: 20130701
  Receipt Date: 20130701
  Transmission Date: 20140515
  Serious: No
  Sender: FDA-Public Use
  Company Number: US-009507513-1306USA011631

PATIENT
  Age: 67 Year
  Sex: Female

DRUGS (11)
  1. JANUMET [Suspect]
     Indication: DIABETES MELLITUS
     Dosage: 50/1000 MG, BID
     Route: 048
  2. ASPIRIN [Concomitant]
  3. ATENOLOL [Concomitant]
  4. AMLODIPINE [Concomitant]
  5. ZOCOR [Concomitant]
     Route: 048
  6. AMBIEN [Concomitant]
  7. DIOVAN [Concomitant]
  8. DEMADEX [Concomitant]
  9. KLOR-CON [Concomitant]
  10. SYNTHROID [Concomitant]
  11. VESICARE [Concomitant]

REACTIONS (4)
  - Blood urea increased [Unknown]
  - Blood pressure increased [Unknown]
  - Blood creatinine increased [Unknown]
  - Off label use [Unknown]
